FAERS Safety Report 4899289-4 (Version None)
Quarter: 2006Q1

REPORT INFORMATION
  Report Type: 
  Country: None (occurrence: None)
  Receive Date: 20060131
  Receipt Date: 20060116
  Transmission Date: 20060701
  Serious: Yes (Hospitalization)
  Sender: FDA-Public Use
  Company Number: 2005-136113-NL

PATIENT
  Age: 21 Year
  Sex: Female

DRUGS (4)
  1. CHORIONIC GONADOTROPIN [Suspect]
     Indication: ASSISTED FERTILISATION
     Dosage: 1 DF INTRAMUSCULAR
     Route: 030
     Dates: start: 20031101, end: 20031201
  2. UROFOLLITROPIN [Suspect]
     Indication: ASSISTED FERTILISATION
     Dosage: DF SUBCUTANEOUS
     Route: 058
     Dates: start: 20031201, end: 20031201
  3. CLOMIPHENE CITRATE [Suspect]
     Dosage: DF ORAL
     Route: 048
     Dates: start: 20031001, end: 20031101
  4. ORLISTAT [Concomitant]

REACTIONS (1)
  - PANCREATITIS ACUTE [None]
